FAERS Safety Report 19784767 (Version 1)
Quarter: 2021Q3

REPORT INFORMATION
  Report Type: Spontaneous
  Country: US (occurrence: US)
  Receive Date: 20210903
  Receipt Date: 20210903
  Transmission Date: 20211014
  Serious: No
  Sender: FDA-Public Use
  Company Number: US-GILEAD-2021-0546738

PATIENT
  Sex: Female

DRUGS (2)
  1. CAYSTON [Suspect]
     Active Substance: AZTREONAM
     Dosage: UNK
     Route: 065
     Dates: start: 2021
  2. CAYSTON [Suspect]
     Active Substance: AZTREONAM
     Indication: CYSTIC FIBROSIS
     Dosage: UNK
     Route: 065

REACTIONS (1)
  - Sexually inappropriate behaviour [Not Recovered/Not Resolved]
